FAERS Safety Report 11800933 (Version 2)
Quarter: 2015Q4

REPORT INFORMATION
  Report Type: Spontaneous
  Country: JP (occurrence: JP)
  Receive Date: 20151204
  Receipt Date: 20151229
  Transmission Date: 20160305
  Serious: Yes (Hospitalization)
  Sender: FDA-Public Use
  Company Number: JP-UCBSA-2015038042

PATIENT
  Age: 73 Year
  Sex: Female
  Weight: 42.7 kg

DRUGS (2)
  1. CIMZIA [Suspect]
     Active Substance: CERTOLIZUMAB PEGOL
     Indication: RHEUMATOID ARTHRITIS
     Dosage: 400 MG, UNK
     Route: 058
     Dates: start: 201401, end: 20151026
  2. RHEUMATREX [Concomitant]
     Active Substance: METHOTREXATE SODIUM
     Indication: PRODUCT USED FOR UNKNOWN INDICATION
     Dosage: UNK
     Route: 048
     Dates: end: 20151023

REACTIONS (3)
  - Antineutrophil cytoplasmic antibody positive [Unknown]
  - Proteinuria [Recovering/Resolving]
  - Lichen planus [Recovering/Resolving]

NARRATIVE: CASE EVENT DATE: 2015
